FAERS Safety Report 20090440 (Version 1)
Quarter: 2021Q4

REPORT INFORMATION
  Report Type: Spontaneous
  Country: CN (occurrence: CN)
  Receive Date: 20211119
  Receipt Date: 20211119
  Transmission Date: 20220304
  Serious: Yes (Other)
  Sender: FDA-Public Use
  Company Number: CN-BAYER-2021A248651

PATIENT
  Age: 66 Year
  Sex: Male
  Weight: 40 kg

DRUGS (1)
  1. CIPROFLOXACIN [Suspect]
     Active Substance: CIPROFLOXACIN
     Indication: Pneumonia pseudomonal
     Dosage: 0.4 G, BID
     Route: 041
     Dates: start: 20210809, end: 20210809

REACTIONS (4)
  - Epilepsy [Recovering/Resolving]
  - Cerebral infarction [None]
  - Seizure [Recovering/Resolving]
  - Staring [Recovering/Resolving]

NARRATIVE: CASE EVENT DATE: 20210809
